FAERS Safety Report 6103781-4 (Version None)
Quarter: 2009Q1

REPORT INFORMATION
  Report Type: 
  Country: None (occurrence: None)
  Receive Date: 20090305
  Receipt Date: 20090223
  Transmission Date: 20090719
  Serious: Yes (Hospitalization, Other)
  Sender: FDA-Public Use
  Company Number: GR-ABBOTT-09P-066-0558733-00

PATIENT
  Age: 78 Year
  Sex: Male
  Weight: 71 kg

DRUGS (15)
  1. ZEMPLAR [Suspect]
     Indication: HYPERPARATHYROIDISM SECONDARY
     Route: 042
     Dates: start: 20070420
  2. ARANESP [Concomitant]
     Indication: DRUG USE FOR UNKNOWN INDICATION
  3. FERROVIN [Concomitant]
     Indication: DRUG USE FOR UNKNOWN INDICATION
  4. SUPERAMIN [Concomitant]
     Indication: DRUG USE FOR UNKNOWN INDICATION
  5. NEUROBION [Concomitant]
     Indication: DRUG USE FOR UNKNOWN INDICATION
  6. FILLICINE [Concomitant]
     Indication: DRUG USE FOR UNKNOWN INDICATION
  7. RENAGEL [Concomitant]
     Indication: DRUG USE FOR UNKNOWN INDICATION
  8. MONOSORDIL [Concomitant]
     Indication: DRUG USE FOR UNKNOWN INDICATION
  9. RENITEC [Concomitant]
     Indication: DRUG USE FOR UNKNOWN INDICATION
  10. THEO-DUR [Concomitant]
     Indication: DRUG USE FOR UNKNOWN INDICATION
  11. BEROVENT [Concomitant]
     Indication: DRUG USE FOR UNKNOWN INDICATION
  12. PULMICORT-100 [Concomitant]
     Indication: DRUG USE FOR UNKNOWN INDICATION
  13. TILDIEM [Concomitant]
     Indication: DRUG USE FOR UNKNOWN INDICATION
  14. ZANTAC [Concomitant]
     Indication: DRUG USE FOR UNKNOWN INDICATION
  15. SEROPRAM [Concomitant]
     Indication: DRUG USE FOR UNKNOWN INDICATION

REACTIONS (3)
  - GASTRIC ULCER [None]
  - MELAENA [None]
  - UPPER GASTROINTESTINAL HAEMORRHAGE [None]
